FAERS Safety Report 5831188-3 (Version None)
Quarter: 2008Q3

REPORT INFORMATION
  Report Type: 
  Country: None (occurrence: None)
  Receive Date: 20080801
  Receipt Date: 20080520
  Transmission Date: 20090109
  Serious: No
  Sender: FDA-Public Use
  Company Number: US-BRISTOL-MYERS SQUIBB COMPANY-14198139

PATIENT
  Age: 71 Year
  Sex: Female
  Weight: 96 kg

DRUGS (5)
  1. COUMADIN [Suspect]
     Indication: HEART RATE IRREGULAR
     Dosage: 1 DOSAGE FORM = 5MG 4 DAYS ALTERNATING WITH 7.5 MG 3 DAYS A WEEK.
  2. ATENOLOL [Concomitant]
  3. HYDROCHLOROTHIAZIDE [Concomitant]
  4. PREVACID [Concomitant]
  5. ASPIRIN [Concomitant]

REACTIONS (5)
  - ARTHRALGIA [None]
  - HEADACHE [None]
  - INCREASED TENDENCY TO BRUISE [None]
  - JOINT SWELLING [None]
  - NAUSEA [None]
